FAERS Safety Report 10903453 (Version 2)
Quarter: 2015Q1

REPORT INFORMATION
  Report Type: Spontaneous
  Country: US (occurrence: None)
  Receive Date: 20150304
  Receipt Date: 20150309
  Transmission Date: 20150721
  Serious: Yes (Other)
  Sender: FDA-Public Use
  Company Number: ADR-2015-00432

PATIENT
  Age: 38 Year
  Sex: Male

DRUGS (1)
  1. BACLOFEN INTRATHECAL (2000 MCG/ML) [Suspect]
     Active Substance: BACLOFEN
     Indication: CEREBRAL PALSY
     Route: 037

REACTIONS (6)
  - Overdose [None]
  - Seizure [None]
  - Toxicity to various agents [None]
  - Bradycardia [None]
  - Hypothermia [None]
  - Unresponsive to stimuli [None]

NARRATIVE: CASE EVENT DATE: 20150124
